FAERS Safety Report 24619240 (Version 3)
Quarter: 2025Q3

REPORT INFORMATION
  Report Type: Spontaneous
  Country: AU (occurrence: AU)
  Receive Date: 20241114
  Receipt Date: 20250909
  Transmission Date: 20251021
  Serious: Yes (Hospitalization)
  Sender: JOHNSON AND JOHNSON
  Company Number: AU-JNJFOC-20241126795

PATIENT
  Age: 37 Year
  Sex: Male

DRUGS (4)
  1. STELARA [Suspect]
     Active Substance: USTEKINUMAB
     Indication: Colitis ulcerative
     Route: 058
  2. BUDESONIDE [Suspect]
     Active Substance: BUDESONIDE
  3. MESALAMINE [Concomitant]
     Active Substance: MESALAMINE
     Indication: Product used for unknown indication
  4. AMOXICILLIN [Concomitant]
     Active Substance: AMOXICILLIN
     Indication: Hyposplenism

REACTIONS (1)
  - Cytomegalovirus colitis [Recovering/Resolving]
